FAERS Safety Report 4277033-1 (Version None)
Quarter: 2004Q1

REPORT INFORMATION
  Report Type: 
  Country: None (occurrence: None)
  Receive Date: 20040120
  Receipt Date: 20040109
  Transmission Date: 20041129
  Serious: Yes (Hospitalization, Other)
  Sender: FDA-Public Use
  Company Number: HQWYE916629DEC03

PATIENT
  Age: 68 Year
  Sex: Female

DRUGS (7)
  1. INIPOMP (PANTOPRAZOLE, TABLET, DELAYED RELEASE) [Suspect]
     Indication: ABDOMINAL PAIN UPPER
     Dosage: 40 MG (FREQUENCY UNSPECIFIED) ORAL
     Route: 048
     Dates: start: 20031120, end: 20031122
  2. COAPROVEL (IRBESARTAN/HYDROCHLOROTHIAZIDE [Suspect]
     Indication: HYPERTENSION
     Dosage: 300 MG 1X PER 1 DAY ORAL
     Route: 048
     Dates: start: 20031120, end: 20031122
  3. IBUPROFEN AND PSEUDOEPHEDRINE HCL [Suspect]
     Indication: RHINITIS
     Dosage: ORAL
     Route: 048
     Dates: start: 20031115, end: 20031120
  4. FENOFIBRATE [Suspect]
     Dosage: 300 MG 1X PER 1 DAY ORAL
     Route: 048
  5. VAXIGRIP (INFLUENZA VIRUS VACCINE POLYVALENT) [Suspect]
     Indication: IMMUNISATION
     Dosage: 1 TIME (S)
     Dates: start: 20031114, end: 20031114
  6. ZESTORETIC [Suspect]
     Dosage: 32.5 MG 1X PER 1 DAY ORAL
     Route: 048
     Dates: end: 20031120
  7. ZESTORETIC [Suspect]
     Dosage: 32.5 MG 1X PER 1 DAY ORAL
     Route: 048
     Dates: start: 20031122

REACTIONS (3)
  - ERYTHEMA MULTIFORME [None]
  - LYMPHOCYTE COUNT INCREASED [None]
  - PYREXIA [None]
